FAERS Safety Report 7496290-1 (Version None)
Quarter: 2011Q2

REPORT INFORMATION
  Report Type: 
  Country: None (occurrence: None)
  Receive Date: 20110523
  Receipt Date: 20110504
  Transmission Date: 20111010
  Serious: No
  Sender: FDA-Public Use
  Company Number: US-B.I. PHARMACEUTICALS,INC./RIDGEFIELD-2011-BP-08318BP

PATIENT
  Age: 67 Year
  Sex: Male

DRUGS (5)
  1. LOSARTAN [Concomitant]
     Dosage: 50 MG
     Route: 048
     Dates: start: 20100101
  2. PRADAXA [Suspect]
     Indication: ATRIAL FIBRILLATION
     Dosage: 300 MG
     Route: 048
     Dates: start: 20110101
  3. GEMFIBROZIL [Concomitant]
     Dosage: 600 MG
     Route: 048
     Dates: start: 20090101
  4. NORVASC [Concomitant]
     Dosage: 10 MG
     Route: 048
     Dates: start: 20060101
  5. SOTALOL HCL [Concomitant]
     Dosage: 240 MG
     Route: 048
     Dates: start: 20100301

REACTIONS (3)
  - BURSITIS [None]
  - PAIN IN EXTREMITY [None]
  - DIARRHOEA [None]
